FAERS Safety Report 15200380 (Version 1)
Quarter: 2018Q3

REPORT INFORMATION
  Report Type: Other
  Country: DE (occurrence: DE)
  Receive Date: 20180726
  Receipt Date: 20180726
  Transmission Date: 20181010
  Serious: No
  Sender: FDA-Public Use
  Company Number: DE-LUPIN PHARMACEUTICALS INC.-2018-00618

PATIENT
  Age: 13 Year
  Sex: Male

DRUGS (2)
  1. OSPOLOT [Suspect]
     Active Substance: SULTHIAME
     Indication: PRODUCT USED FOR UNKNOWN INDICATION
     Dosage: UNK
     Route: 065
  2. LAMOTRIGINE. [Suspect]
     Active Substance: LAMOTRIGINE
     Indication: PRODUCT USED FOR UNKNOWN INDICATION
     Dosage: UNK
     Route: 065

REACTIONS (4)
  - Drug eruption [Not Recovered/Not Resolved]
  - Vitamin D deficiency [Unknown]
  - Rash [Unknown]
  - Pectus excavatum [Unknown]

NARRATIVE: CASE EVENT DATE: 20171115
